FAERS Safety Report 11189117 (Version 1)
Quarter: 2015Q2

REPORT INFORMATION
  Report Type: Report from Study
  Country: ZA (occurrence: ZA)
  Receive Date: 20150615
  Receipt Date: 20150615
  Transmission Date: 20150821
  Serious: Yes (Hospitalization)
  Sender: FDA-Public Use
  Company Number: ZA-ROCHE-1547565

PATIENT
  Age: 64 Year
  Sex: Female
  Weight: 78 kg

DRUGS (3)
  1. ZIAK (SOUTH AFRICA) [Concomitant]
     Route: 065
     Dates: start: 20040610
  2. VEMURAFENIB [Suspect]
     Active Substance: VEMURAFENIB
     Indication: MALIGNANT MELANOMA
     Dosage: DATE OF LAST DOSE PRIOR TO SAE 02/MAR/2015
     Route: 048
     Dates: start: 20141117, end: 20150302
  3. TEMAZEPAM. [Concomitant]
     Active Substance: TEMAZEPAM
     Route: 065
     Dates: start: 20090116

REACTIONS (1)
  - Muscular weakness [Recovered/Resolved]

NARRATIVE: CASE EVENT DATE: 20150226
